FAERS Safety Report 21320261 (Version 1)
Quarter: 2022Q3

REPORT INFORMATION
  Report Type: Spontaneous
  Country: US (occurrence: US)
  Receive Date: 20220911
  Receipt Date: 20220911
  Transmission Date: 20221027
  Serious: No
  Sender: FDA-Public Use
  Company Number: US-SANOFI-01266991

PATIENT
  Age: 50 Year
  Sex: Male

DRUGS (1)
  1. LEFLUNOMIDE [Suspect]
     Active Substance: LEFLUNOMIDE
     Indication: BK virus infection
     Dosage: 20 MG, BID

REACTIONS (4)
  - Musculoskeletal stiffness [Unknown]
  - Hypoaesthesia [Unknown]
  - Product use in unapproved indication [Unknown]
  - Product use issue [Unknown]
